FAERS Safety Report 18963311 (Version 1)
Quarter: 2021Q1

REPORT INFORMATION
  Report Type: Spontaneous
  Country: US (occurrence: US)
  Receive Date: 20210303
  Receipt Date: 20210303
  Transmission Date: 20210420
  Serious: Yes (Hospitalization)
  Sender: FDA-Public Use
  Company Number: None

PATIENT
  Age: 57 Year
  Sex: Female

DRUGS (11)
  1. UBRELVY [Concomitant]
     Active Substance: UBROGEPANT
  2. LEVOFLOXACIN. [Concomitant]
     Active Substance: LEVOFLOXACIN
  3. ESZOPICLONE. [Concomitant]
     Active Substance: ESZOPICLONE
  4. HUMIRA [Suspect]
     Active Substance: ADALIMUMAB
     Indication: ANKYLOSING SPONDYLITIS
     Dosage: ?          OTHER FREQUENCY:EVERY OTHER WEEK;?
     Route: 058
     Dates: start: 20201208
  5. PREDNISONE. [Concomitant]
     Active Substance: PREDNISONE
  6. VIMPAT [Concomitant]
     Active Substance: LACOSAMIDE
  7. TRELEGY ELLIPTA [Concomitant]
     Active Substance: FLUTICASONE FUROATE\UMECLIDINIUM BROMIDE\VILANTEROL TRIFENATATE
  8. TOPIRAMATE. [Concomitant]
     Active Substance: TOPIRAMATE
  9. AZITHROMYCIN ANHYDROUS. [Concomitant]
     Active Substance: AZITHROMYCIN ANHYDROUS
  10. ONDANSETRON [Concomitant]
     Active Substance: ONDANSETRON
  11. NOHIST?DM [Concomitant]

REACTIONS (1)
  - COVID-19 [None]

NARRATIVE: CASE EVENT DATE: 20200801
